FAERS Safety Report 7629647-6 (Version None)
Quarter: 2011Q3

REPORT INFORMATION
  Report Type: 
  Country: None (occurrence: None)
  Receive Date: 20110722
  Receipt Date: 20110714
  Transmission Date: 20111222
  Serious: Yes (Death)
  Sender: FDA-Public Use
  Company Number: US-JNJFOC-20110707374

PATIENT
  Sex: Female

DRUGS (1)
  1. REOPRO [Suspect]
     Indication: PRODUCT USED FOR UNKNOWN INDICATION
     Route: 042
     Dates: start: 20110515, end: 20110515

REACTIONS (3)
  - PULMONARY OEDEMA [None]
  - ATRIOVENTRICULAR BLOCK COMPLETE [None]
  - RESPIRATORY DISTRESS [None]
